FAERS Safety Report 10494264 (Version 1)
Quarter: 2014Q4

REPORT INFORMATION
  Report Type: Spontaneous
  Country: US (occurrence: None)
  Receive Date: 20141002
  Receipt Date: 20141002
  Transmission Date: 20150528
  Serious: Yes (Hospitalization, Disabling, Other)
  Sender: FDA-Public Use
  Company Number: None

PATIENT
  Age: 36 Year
  Sex: Female
  Weight: 58.06 kg

DRUGS (2)
  1. CIPRO [Suspect]
     Active Substance: CIPROFLOXACIN HYDROCHLORIDE
     Indication: URINARY TRACT INFECTION
  2. LEVAQUIN [Suspect]
     Active Substance: LEVOFLOXACIN
     Indication: URINARY TRACT INFECTION

REACTIONS (11)
  - Nerve injury [None]
  - Impaired work ability [None]
  - Tendon disorder [None]
  - Neuroma [None]
  - Ligament rupture [None]
  - Asthenia [None]
  - Oedema [None]
  - Arthralgia [None]
  - Pain in extremity [None]
  - Hypoaesthesia [None]
  - Decreased activity [None]

NARRATIVE: CASE EVENT DATE: 20110601
